FAERS Safety Report 12930857 (Version 1)
Quarter: 2016Q4

REPORT INFORMATION
  Report Type: Spontaneous
  Country: BR (occurrence: BR)
  Receive Date: 20161110
  Receipt Date: 20161110
  Transmission Date: 20170207
  Serious: Yes (Other)
  Sender: FDA-Public Use
  Company Number: BR-ABBVIE-16P-020-1763935-00

PATIENT
  Age: 8 Year
  Sex: Female
  Weight: 30 kg

DRUGS (2)
  1. NEO DECAPEPTYL [Concomitant]
     Indication: DELAYED PUBERTY
     Dates: start: 20160323
  2. LUPRON DEPOT [Suspect]
     Active Substance: LEUPROLIDE ACETATE
     Indication: DELAYED PUBERTY
     Route: 030
     Dates: start: 20161008, end: 20161008

REACTIONS (9)
  - Injection site abscess [Recovering/Resolving]
  - Abscess [Unknown]
  - Injection site oedema [Unknown]
  - Injection site erythema [Recovered/Resolved]
  - Breast enlargement [Unknown]
  - Injection site hypersensitivity [Recovering/Resolving]
  - Injection site nodule [Unknown]
  - Injection site pain [Unknown]
  - Mammogram abnormal [Unknown]

NARRATIVE: CASE EVENT DATE: 20161015
